FAERS Safety Report 6822759-6 (Version None)
Quarter: 2010Q3

REPORT INFORMATION
  Report Type: 
  Country: None (occurrence: None)
  Receive Date: 20100708
  Receipt Date: 20100624
  Transmission Date: 20110219
  Serious: Yes (Hospitalization, Disabling)
  Sender: FDA-Public Use
  Company Number: US-ROCHE-700516

PATIENT
  Sex: Female
  Weight: 62.6 kg

DRUGS (8)
  1. BONIVA [Suspect]
     Indication: OSTEOPOROSIS
     Route: 048
     Dates: start: 20040923, end: 20100101
  2. FOSAMAX [Suspect]
     Indication: OSTEOPOROSIS
     Route: 048
     Dates: start: 19980406, end: 20000425
  3. FOSAMAX [Suspect]
     Route: 048
     Dates: end: 20040923
  4. SYNTHROID [Concomitant]
     Indication: HYPOTHYROIDISM
     Dosage: TAKEN ONCE IN EVERY MORNING
     Route: 048
     Dates: start: 20061206
  5. RAMIPRIL [Concomitant]
     Indication: HYPERTENSION
     Dosage: TAKEN ONCE IN EVERY MORNING
     Route: 048
     Dates: start: 20011003
  6. CRESTOR [Concomitant]
     Indication: DYSLIPIDAEMIA
     Dosage: QHS (EVERY NIGHT)
     Route: 048
  7. CA+ + D [Concomitant]
     Indication: OSTEOPOROSIS
     Dosage: DOSE REPORTED AS 600/400
     Route: 048
     Dates: start: 19980409
  8. ASPIRIN [Concomitant]
     Dosage: EVERY MORNING
     Route: 048
     Dates: start: 20040423

REACTIONS (1)
  - FEMUR FRACTURE [None]
